FAERS Safety Report 7946178-4 (Version None)
Quarter: 2011Q4

REPORT INFORMATION
  Report Type: 
  Country: None (occurrence: None)
  Receive Date: 20111129
  Receipt Date: 20111122
  Transmission Date: 20120403
  Serious: Yes (Hospitalization)
  Sender: FDA-Public Use
  Company Number: IT-GLAXOSMITHKLINE-B0765713A

PATIENT
  Sex: Male

DRUGS (7)
  1. CEFTAZIDIME [Suspect]
     Indication: BRONCHITIS
     Dosage: 6U PER DAY
     Route: 030
     Dates: start: 20111028, end: 20111104
  2. ZOLOFT [Suspect]
     Indication: DEPRESSION
     Dosage: 50MG PER DAY
     Route: 048
     Dates: start: 20080101, end: 20111104
  3. CORDARONE [Suspect]
     Indication: ARRHYTHMIA
     Dosage: 1000MG WEEKLY
     Route: 048
     Dates: start: 20080101, end: 20111104
  4. OMEPRAZOLE [Concomitant]
     Indication: GASTROINTESTINAL ULCER
     Dosage: 20MG PER DAY
     Route: 048
  5. HALOPERIDOL [Concomitant]
     Indication: DEMENTIA
     Dosage: 5MG PER DAY
     Route: 048
  6. LASIX [Suspect]
     Indication: HYPERTENSION
     Dosage: 25MG PER DAY
     Route: 048
     Dates: start: 20100101, end: 20111104
  7. ASPIRIN [Suspect]
     Indication: PROPHYLAXIS
     Dosage: 100MG PER DAY
     Route: 048
     Dates: start: 20100111, end: 20111104

REACTIONS (2)
  - ANAEMIA [None]
  - MELAENA [None]
